FAERS Safety Report 12276571 (Version 1)
Quarter: 2016Q2

REPORT INFORMATION
  Report Type: Spontaneous
  Country: US (occurrence: None)
  Receive Date: 20160415
  Receipt Date: 20160415
  Transmission Date: 20160815
  Serious: Yes (Other)
  Sender: FDA-Public Use
  Company Number: None

PATIENT
  Age: 23 Year
  Sex: Female
  Weight: 56.7 kg

DRUGS (3)
  1. VITAMIN C WITH ROSE HIPS [Concomitant]
  2. ORTHO TRI CYCLEN [Concomitant]
     Active Substance: ETHINYL ESTRADIOL\NORGESTIMATE
  3. GRASTEK [Suspect]
     Active Substance: PHLEUM PRATENSE POLLEN
     Indication: ALLERGY TEST
     Dosage: 1 TABLET(S) IN THE MORNING TAKEN UNDER THE TONGUE
     Route: 060
     Dates: start: 20160202, end: 20160414

REACTIONS (5)
  - Skin exfoliation [None]
  - Angular cheilitis [None]
  - Feeling hot [None]
  - Skin discolouration [None]
  - Dry skin [None]

NARRATIVE: CASE EVENT DATE: 20160326
